FAERS Safety Report 25904461 (Version 1)
Quarter: 2025Q4

REPORT INFORMATION
  Report Type: Spontaneous
  Country: US (occurrence: US)
  Receive Date: 20251010
  Receipt Date: 20251010
  Transmission Date: 20260117
  Serious: No
  Sender: SUNOVION
  Company Number: US-SMPA-2025SPA012859

PATIENT
  Age: 80 Year

DRUGS (2)
  1. APTIOM [Suspect]
     Active Substance: ESLICARBAZEPINE ACETATE
     Indication: Vestibular migraine
     Dosage: UNKNOWN
     Route: 048
  2. ESLICARBAZEPINE ACETATE [Suspect]
     Active Substance: ESLICARBAZEPINE ACETATE
     Indication: Vestibular migraine
     Dosage: UNKNOWN
     Route: 048

REACTIONS (2)
  - Illness [Unknown]
  - Off label use [Unknown]
